FAERS Safety Report 5637936-X (Version None)
Quarter: 2008Q1

REPORT INFORMATION
  Report Type: 
  Country: None (occurrence: None)
  Receive Date: 20080222
  Receipt Date: 20080222
  Transmission Date: 20080703
  Serious: No
  Sender: FDA-Public Use
  Company Number: None

PATIENT
  Sex: Female

DRUGS (18)
  1. COREG [Suspect]
     Indication: CARDIAC FAILURE CONGESTIVE
     Dosage: 25MG BID ABOUT ONCE A MONTH
  2. COREG [Suspect]
     Indication: HYPERTENSION
     Dosage: 25MG BID ABOUT ONCE A MONTH
  3. TRAZODONE HCL [Concomitant]
  4. PRILOSEC [Concomitant]
  5. REMERON [Concomitant]
  6. ASPIRIN [Concomitant]
  7. ADVAIR DISKUS 100/50 [Concomitant]
  8. CARDIZEM LA [Concomitant]
  9. AVAPRO [Concomitant]
  10. COREG [Concomitant]
  11. KLOR-CON [Concomitant]
  12. PERCODAN-DEMI [Concomitant]
  13. DEMADEX [Concomitant]
  14. FLONASE [Concomitant]
  15. CHROMAGEN [Concomitant]
  16. AZMACORT [Concomitant]
  17. BUMEX [Concomitant]
  18. RISPERDAL [Concomitant]

REACTIONS (3)
  - ABDOMINAL DISCOMFORT [None]
  - NAUSEA [None]
  - PHARMACEUTICAL PRODUCT COMPLAINT [None]
